FAERS Safety Report 7861108-1 (Version None)
Quarter: 2011Q4

REPORT INFORMATION
  Report Type: 
  Country: None (occurrence: None)
  Receive Date: 20111027
  Receipt Date: 20111025
  Transmission Date: 20120403
  Serious: Yes (Hospitalization)
  Sender: FDA-Public Use
  Company Number: US-ELI_LILLY_AND_COMPANY-US201107006800

PATIENT
  Sex: Female

DRUGS (1)
  1. ADCIRCA [Suspect]
     Dosage: 40 MG, QD
     Route: 048
     Dates: start: 20110525

REACTIONS (3)
  - HOSPITALISATION [None]
  - VISUAL IMPAIRMENT [None]
  - FLUID RETENTION [None]
